FAERS Safety Report 7952044-0 (Version None)
Quarter: 2011Q4

REPORT INFORMATION
  Report Type: 
  Country: None (occurrence: None)
  Receive Date: 20111201
  Receipt Date: 20111116
  Transmission Date: 20120403
  Serious: Yes (Hospitalization, Other)
  Sender: FDA-Public Use
  Company Number: CA-ARROW GEN-2011-19966

PATIENT
  Age: 36 Year
  Sex: Male

DRUGS (1)
  1. ALBUTEROL [Suspect]
     Indication: ASTHMA
     Dosage: 2,5 MG FOLLOWED BY 5 MG Q 20 MINS FOR A TOTAL DOSE OF 22.5MG (NEBULISED)
     Route: 055

REACTIONS (3)
  - LACTIC ACIDOSIS [None]
  - HYPOKALAEMIA [None]
  - HYPERGLYCAEMIA [None]
